FAERS Safety Report 20044549 (Version 4)
Quarter: 2022Q2

REPORT INFORMATION
  Report Type: Report from Study
  Country: GB (occurrence: GB)
  Receive Date: 20211108
  Receipt Date: 20220629
  Transmission Date: 20220720
  Serious: Yes (Hospitalization, Other)
  Sender: FDA-Public Use
  Company Number: GB-ROCHE-2897865

PATIENT
  Age: 26 Year
  Sex: Male
  Weight: 97.7 kg

DRUGS (82)
  1. DOXORUBICIN [Suspect]
     Active Substance: DOXORUBICIN
     Indication: Diffuse large B-cell lymphoma
     Dosage: (TOTAL VOLUME PRIOR AE 50 ML), ON 17/AUG/2021 AT 5:15
     Route: 042
     Dates: start: 20210817
  2. DOXORUBICIN [Suspect]
     Active Substance: DOXORUBICIN
     Indication: Non-Hodgkin^s lymphoma
     Dosage: MOST RECENT DOSE PRIOR TO AE AND SAE
     Route: 042
     Dates: start: 20210817, end: 20210817
  3. DOXORUBICIN [Suspect]
     Active Substance: DOXORUBICIN
     Route: 065
     Dates: start: 20210817, end: 20210817
  4. CYCLOPHOSPHAMIDE [Suspect]
     Active Substance: CYCLOPHOSPHAMIDE
     Indication: Diffuse large B-cell lymphoma
     Dosage: TOTAL VOLUME PRIOR AE 50 ML, ON 17/AUG/2021 AT 5:43
     Route: 042
     Dates: start: 20210817
  5. CYCLOPHOSPHAMIDE [Suspect]
     Active Substance: CYCLOPHOSPHAMIDE
     Indication: Non-Hodgkin^s lymphoma
     Dosage: MOST RECENT DOSE PRIOR TO AE AND SAE
     Route: 042
     Dates: start: 20210817, end: 20210817
  6. METHYLPREDNISOLONE [Suspect]
     Active Substance: METHYLPREDNISOLONE
     Indication: Diffuse large B-cell lymphoma
     Dosage: 80 MILLIGRAM,PRN
     Route: 048
     Dates: start: 20210817
  7. METHYLPREDNISOLONE [Suspect]
     Active Substance: METHYLPREDNISOLONE
     Indication: Premedication
     Dosage: MOST RECENT DOSE PRIOR TO AE AND SAE
     Route: 048
     Dates: start: 20210817
  8. METHYLPREDNISOLONE [Suspect]
     Active Substance: METHYLPREDNISOLONE
     Indication: Non-Hodgkin^s lymphoma
  9. PREDNISOLONE [Suspect]
     Active Substance: PREDNISOLONE
     Indication: Diffuse large B-cell lymphoma
     Dosage: 100 MILLIGRAM,PRN
     Route: 048
     Dates: start: 20210818
  10. PREDNISOLONE [Suspect]
     Active Substance: PREDNISOLONE
     Indication: Non-Hodgkin^s lymphoma
     Dosage: MOST RECENT DOSE PRIOR TO AE AND SAE
     Route: 048
     Dates: start: 20210821
  11. PREDNISOLONE [Suspect]
     Active Substance: PREDNISOLONE
     Dosage: ON 20/AUG/2021, HE RECEIVED START DATE OF MOST RECENT DOSE OF PREDNISOLONE PRIOR TO THE ADVERSE EVEN
     Route: 048
     Dates: start: 20210816
  12. PREDNISOLONE [Suspect]
     Active Substance: PREDNISOLONE
     Dosage: UNK
     Route: 065
     Dates: start: 20211019
  13. RITUXIMAB [Suspect]
     Active Substance: RITUXIMAB
     Indication: Diffuse large B-cell lymphoma
     Dosage: (TOTAL VOLUME PRIOR AE AND SAE 500 ML)
     Route: 041
     Dates: start: 20210817
  14. RITUXIMAB [Suspect]
     Active Substance: RITUXIMAB
     Indication: Non-Hodgkin^s lymphoma
     Dosage: MOST RECENT DOSE PRIOR TO AE AND SAE
     Route: 041
     Dates: start: 20210817, end: 20210817
  15. VINCRISTINE [Suspect]
     Active Substance: VINCRISTINE
     Indication: Diffuse large B-cell lymphoma
     Dosage: (TOTAL VOLUME PRIOR AE AND SAE 50 ML), ON 17/AUG/2021 AT 6:10 PM TO 6:20 PM, RECEIVED MOST RECENT DO
     Route: 042
     Dates: start: 20210817
  16. VINCRISTINE [Suspect]
     Active Substance: VINCRISTINE
     Indication: Non-Hodgkin^s lymphoma
     Dosage: MOST RECENT DOSE PRIOR TO AE AND SAE
     Route: 042
     Dates: start: 20210817, end: 20210817
  17. ACYCLOVIR [Concomitant]
     Active Substance: ACYCLOVIR
     Indication: Antiviral prophylaxis
     Dosage: PROPHYLACTIC ANTI-VIRAL
     Route: 065
     Dates: start: 20210817
  18. ALLOPURINOL [Concomitant]
     Active Substance: ALLOPURINOL
     Indication: Blood uric acid increased
     Dosage: REDUCE URIC ACID
     Route: 065
     Dates: start: 20210817
  19. CHLORPHENIRAMINE MALEATE [Concomitant]
     Active Substance: CHLORPHENIRAMINE MALEATE
     Indication: Prophylaxis
     Dosage: 10 MILLIGRAM,PRN
     Route: 042
     Dates: start: 20210921, end: 20210921
  20. CHLORPHENIRAMINE MALEATE [Concomitant]
     Active Substance: CHLORPHENIRAMINE MALEATE
     Indication: Infusion related reaction
     Dosage: 10 MILLIGRAM,PRN
     Route: 048
     Dates: start: 20210928, end: 20210928
  21. CHLORPHENIRAMINE MALEATE [Concomitant]
     Active Substance: CHLORPHENIRAMINE MALEATE
     Dosage: 10 MILLIGRAM,PRN
     Route: 042
     Dates: start: 20210914, end: 20210914
  22. CHLORPHENIRAMINE MALEATE [Concomitant]
     Active Substance: CHLORPHENIRAMINE MALEATE
     Dosage: 10 MILLIGRAM,PRN
     Route: 042
     Dates: start: 20210907, end: 20210907
  23. CHLORPHENIRAMINE MALEATE [Concomitant]
     Active Substance: CHLORPHENIRAMINE MALEATE
     Dosage: 10 MILLIGRAM,PRN
     Route: 042
     Dates: start: 20210817, end: 20210817
  24. CHLORPHENIRAMINE MALEATE [Concomitant]
     Active Substance: CHLORPHENIRAMINE MALEATE
     Dosage: 10 MILLIGRAM,PRN
     Route: 042
     Dates: start: 20211005, end: 20211005
  25. CHLORPHENIRAMINE MALEATE [Concomitant]
     Active Substance: CHLORPHENIRAMINE MALEATE
     Dosage: 10 MILLIGRAM,PRN
     Route: 048
     Dates: start: 20211019, end: 20211019
  26. CHLORPHENIRAMINE MALEATE [Concomitant]
     Active Substance: CHLORPHENIRAMINE MALEATE
     Dosage: 10 MILLIGRAM,PRN
     Route: 042
     Dates: start: 20211026, end: 20211026
  27. CHLORPHENIRAMINE MALEATE [Concomitant]
     Active Substance: CHLORPHENIRAMINE MALEATE
     Dosage: 10 MILLIGRAM,PRN
     Route: 042
     Dates: start: 20211109, end: 20211109
  28. CHLORPHENIRAMINE MALEATE [Concomitant]
     Active Substance: CHLORPHENIRAMINE MALEATE
     Dosage: 10 MILLIGRAM,PRN
     Route: 042
     Dates: start: 20211116, end: 20211116
  29. CHLORPHENIRAMINE MALEATE [Concomitant]
     Active Substance: CHLORPHENIRAMINE MALEATE
     Dosage: 10 MILLIGRAM,PRN
     Route: 042
     Dates: start: 20211130, end: 20211130
  30. CHLORPHENIRAMINE MALEATE [Concomitant]
     Active Substance: CHLORPHENIRAMINE MALEATE
     Dosage: 10 MILLIGRAM,PRN
     Route: 042
     Dates: start: 20211207, end: 20211207
  31. DEXAMETHASONE [Concomitant]
     Active Substance: DEXAMETHASONE
     Indication: Product used for unknown indication
     Dosage: 20 MILLIGRAM,PRN
     Route: 042
     Dates: start: 20211005, end: 20211005
  32. DEXAMETHASONE [Concomitant]
     Active Substance: DEXAMETHASONE
     Dosage: 20 MILLIGRAM,PRN
     Route: 042
     Dates: start: 20210921, end: 20210921
  33. DEXAMETHASONE [Concomitant]
     Active Substance: DEXAMETHASONE
     Dosage: 20 MILLIGRAM,PRN
     Route: 042
     Dates: start: 20210914, end: 20210914
  34. DEXAMETHASONE [Concomitant]
     Active Substance: DEXAMETHASONE
     Dosage: 20 MILLIGRAM,PRN
     Route: 042
     Dates: start: 20211026, end: 20211026
  35. DEXAMETHASONE [Concomitant]
     Active Substance: DEXAMETHASONE
     Dosage: 20 MILLIGRAM,PRN
     Route: 042
     Dates: start: 20211116, end: 20211116
  36. DEXAMETHASONE [Concomitant]
     Active Substance: DEXAMETHASONE
     Dosage: 20 MILLIGRAM,PRN
     Route: 042
     Dates: start: 20211207, end: 20211207
  37. DEXTROSE [Concomitant]
     Active Substance: DEXTROSE
     Indication: Fluid replacement
     Dosage: HYDRATION
     Route: 065
     Dates: start: 20210823, end: 20210823
  38. ENOXAPARIN [Concomitant]
     Active Substance: ENOXAPARIN
     Indication: Prophylaxis
     Dosage: PROPHYLACTIC ANTI-COAGULANT
     Route: 065
     Dates: start: 20210823, end: 20210823
  39. HYDROCORTISONE [Concomitant]
     Active Substance: HYDROCORTISONE
     Indication: Infusion related reaction
     Dosage: UNK
     Route: 065
     Dates: start: 20210817, end: 20210817
  40. LANSOPRAZOLE [Concomitant]
     Active Substance: LANSOPRAZOLE
     Indication: Unevaluable investigation
     Dosage: ANTI ACID DUE TO STERIODS
     Route: 065
     Dates: start: 20210816
  41. LANSOPRAZOLE [Concomitant]
     Active Substance: LANSOPRAZOLE
     Dosage: UNK
     Route: 065
     Dates: start: 20210817
  42. SODIUM CHLORIDE [Concomitant]
     Active Substance: SODIUM CHLORIDE
     Indication: Fluid replacement
     Dosage: HYDRATION
     Route: 065
     Dates: start: 20210823, end: 20210823
  43. ONDANSETRON [Concomitant]
     Active Substance: ONDANSETRON
     Indication: Vomiting
     Dosage: UNK
     Route: 065
     Dates: start: 20210823, end: 20210823
  44. ONDANSETRON [Concomitant]
     Active Substance: ONDANSETRON
     Indication: Nausea
     Dosage: UNK
     Route: 065
     Dates: start: 20210817
  45. ONDANSETRON [Concomitant]
     Active Substance: ONDANSETRON
     Dosage: 8 MILLIGRAM,PRN
     Route: 065
     Dates: start: 20211019, end: 20211019
  46. ACETAMINOPHEN [Concomitant]
     Active Substance: ACETAMINOPHEN
     Indication: Back pain
     Dosage: 1000 MILLIGRAM,PRN
     Route: 048
     Dates: start: 20210914, end: 20210914
  47. ACETAMINOPHEN [Concomitant]
     Active Substance: ACETAMINOPHEN
     Indication: Lymphoma
     Dosage: 1000 MILLIGRAM,PRN
     Route: 048
     Dates: start: 20210817, end: 20210817
  48. ACETAMINOPHEN [Concomitant]
     Active Substance: ACETAMINOPHEN
     Dosage: 1000 MILLIGRAM,PRN
     Route: 048
     Dates: start: 20210921, end: 20210921
  49. ACETAMINOPHEN [Concomitant]
     Active Substance: ACETAMINOPHEN
     Dosage: 1000 MILLIGRAM,PRN
     Route: 048
     Dates: start: 20211005, end: 20211005
  50. ACETAMINOPHEN [Concomitant]
     Active Substance: ACETAMINOPHEN
     Dosage: 1000 MILLIGRAM,PRN
     Route: 048
     Dates: start: 20210928, end: 20210928
  51. ACETAMINOPHEN [Concomitant]
     Active Substance: ACETAMINOPHEN
     Dosage: 1000 MILLIGRAM,PRN
     Route: 048
     Dates: start: 20210823, end: 20210823
  52. ACETAMINOPHEN [Concomitant]
     Active Substance: ACETAMINOPHEN
     Dosage: 1000 MILLIGRAM,PRN
     Route: 048
     Dates: start: 20210907, end: 20210907
  53. ACETAMINOPHEN [Concomitant]
     Active Substance: ACETAMINOPHEN
     Dosage: 1000 MILLIGRAM,PRN
     Route: 048
     Dates: start: 20211019, end: 20211019
  54. ACETAMINOPHEN [Concomitant]
     Active Substance: ACETAMINOPHEN
     Dosage: 1000 MILLIGRAM,PRN
     Route: 048
     Dates: start: 20211026, end: 20211026
  55. ACETAMINOPHEN [Concomitant]
     Active Substance: ACETAMINOPHEN
     Dosage: 1000 MILLIGRAM,PRN
     Route: 048
     Dates: start: 20211109, end: 20211109
  56. ACETAMINOPHEN [Concomitant]
     Active Substance: ACETAMINOPHEN
     Dosage: 1000 MILLIGRAM,PRN
     Route: 048
     Dates: start: 20211116, end: 20211116
  57. ACETAMINOPHEN [Concomitant]
     Active Substance: ACETAMINOPHEN
     Dosage: 1000 MILLIGRAM,PRN
     Route: 048
     Dates: start: 20211130, end: 20211130
  58. ACETAMINOPHEN [Concomitant]
     Active Substance: ACETAMINOPHEN
     Dosage: 1000 MILLIGRAM,PRN
     Route: 048
     Dates: start: 20211207, end: 20211207
  59. CHLORPHENIRAMINE MALEATE [Concomitant]
     Active Substance: CHLORPHENIRAMINE MALEATE
     Indication: Infusion related reaction
     Dosage: UNK
     Route: 065
     Dates: start: 20210817, end: 20210817
  60. METHYLPREDNISOLONE [Concomitant]
     Active Substance: METHYLPREDNISOLONE
     Indication: Premedication
     Dosage: PREMEDICATION
     Route: 042
     Dates: start: 20210817, end: 20210817
  61. METHYLPREDNISOLONE [Concomitant]
     Active Substance: METHYLPREDNISOLONE
     Dosage: 80 MILLIGRAM,PRN
     Route: 042
     Dates: start: 20210907, end: 20210907
  62. METHYLPREDNISOLONE [Concomitant]
     Active Substance: METHYLPREDNISOLONE
     Dosage: 80 MILLIGRAM,PRN
     Route: 042
     Dates: start: 20210928, end: 20210928
  63. METHYLPREDNISOLONE [Concomitant]
     Active Substance: METHYLPREDNISOLONE
     Dosage: 80 MILLIGRAM,PRN
     Route: 042
     Dates: start: 20211019, end: 20211019
  64. METHYLPREDNISOLONE [Concomitant]
     Active Substance: METHYLPREDNISOLONE
     Dosage: 80 MILLIGRAM,PRN
     Route: 065
     Dates: start: 20211109, end: 20211109
  65. METHYLPREDNISOLONE [Concomitant]
     Active Substance: METHYLPREDNISOLONE
     Dosage: 80 MILLIGRAM,PRN
     Route: 065
     Dates: start: 20211130, end: 20211130
  66. PREDNISOLONE [Concomitant]
     Active Substance: PREDNISOLONE
     Indication: Lymphadenitis
     Dosage: UNK
     Route: 065
     Dates: start: 20210816
  67. PREDNISOLONE [Concomitant]
     Active Substance: PREDNISOLONE
     Indication: Lymphadenitis
     Dosage: 3 MG
     Route: 048
  68. FLUCONAZOLE [Concomitant]
     Active Substance: FLUCONAZOLE
     Indication: Product used for unknown indication
     Dosage: UNK
     Route: 065
     Dates: start: 20211019
  69. FILGRASTIM [Concomitant]
     Active Substance: FILGRASTIM
     Indication: Product used for unknown indication
     Dosage: UNK
     Route: 065
     Dates: start: 20211019
  70. CIPROFLOXACIN [Concomitant]
     Active Substance: CIPROFLOXACIN
     Indication: Product used for unknown indication
     Dosage: UNK
     Route: 065
     Dates: start: 20211019
  71. DOMPERIDONE [Concomitant]
     Active Substance: DOMPERIDONE
     Indication: Product used for unknown indication
     Dosage: UNK
     Route: 065
     Dates: start: 20211019
  72. TRUXIMA [Concomitant]
     Active Substance: RITUXIMAB-ABBS
     Indication: Product used for unknown indication
     Dosage: 800 MILLIGRAM,PRN
     Route: 065
     Dates: start: 20211019, end: 20211019
  73. CYCLOPHOSPHAMIDE [Concomitant]
     Active Substance: CYCLOPHOSPHAMIDE
     Indication: Premedication
     Dosage: UNK
     Route: 065
     Dates: start: 20211019, end: 20211019
  74. DOCUSATE SODIUM [Concomitant]
     Active Substance: DOCUSATE SODIUM
     Indication: Constipation
     Dosage: UNK
     Route: 065
     Dates: start: 20210823
  75. DOXORUBICIN [Concomitant]
     Active Substance: DOXORUBICIN
     Indication: Premedication
     Dosage: 110 MILLIGRAM,PRN
     Route: 065
     Dates: start: 20211019, end: 20211019
  76. VINCRISTINE [Concomitant]
     Active Substance: VINCRISTINE
     Indication: Premedication
     Dosage: 2 MILLIGRAM,PRN
     Route: 065
     Dates: start: 20211019, end: 20211019
  77. MEROPENEM [Concomitant]
     Active Substance: MEROPENEM
     Indication: Sepsis
     Dosage: UNK
     Route: 065
     Dates: start: 20210823, end: 20210823
  78. MEROPENEM [Concomitant]
     Active Substance: MEROPENEM
     Dosage: UNK
     Route: 065
     Dates: start: 20210823, end: 20210824
  79. AMOXICILLIN\CLAVULANATE POTASSIUM [Concomitant]
     Active Substance: AMOXICILLIN\CLAVULANATE POTASSIUM
     Indication: Sepsis
     Dosage: UNK
     Route: 065
     Dates: start: 20210824
  80. CYCLOPHOSPHAMIDE [Concomitant]
     Active Substance: CYCLOPHOSPHAMIDE
     Dosage: UNK
     Route: 065
  81. VINCRISTINE [Concomitant]
     Active Substance: VINCRISTINE
     Dosage: UNK
     Route: 065
  82. DOXORUBICIN [Concomitant]
     Active Substance: DOXORUBICIN
     Dosage: UNK
     Route: 065

REACTIONS (2)
  - Alanine aminotransferase increased [Not Recovered/Not Resolved]
  - Sepsis [Recovering/Resolving]

NARRATIVE: CASE EVENT DATE: 20210823
